FAERS Safety Report 16953447 (Version 6)
Quarter: 2020Q3

REPORT INFORMATION
  Report Type: Spontaneous
  Country: US (occurrence: US)
  Receive Date: 20191023
  Receipt Date: 20200828
  Transmission Date: 20201102
  Serious: Yes (Other)
  Sender: FDA-Public Use
  Company Number: US-SA-2019SA293746

PATIENT

DRUGS (4)
  1. DUPIXENT [Suspect]
     Active Substance: DUPILUMAB
     Indication: ASTHMA
     Dosage: 300 MG, QOW
     Route: 058
     Dates: start: 20181210
  2. XOLAIR [Concomitant]
     Active Substance: OMALIZUMAB
     Route: 065
  3. NUCALA [Concomitant]
     Active Substance: MEPOLIZUMAB
     Route: 065
  4. DUPIXENT [Suspect]
     Active Substance: DUPILUMAB
     Indication: DERMATITIS ATOPIC
     Dosage: 300 MG, QOW
     Route: 058
     Dates: start: 20190201

REACTIONS (9)
  - Anaemia [Unknown]
  - Eye pain [Unknown]
  - Headache [Unknown]
  - Eye pruritus [Unknown]
  - Fatigue [Unknown]
  - Asthenia [Unknown]
  - Eye swelling [Unknown]
  - Lethargy [Unknown]
  - Hypoaesthesia [Unknown]

NARRATIVE: CASE EVENT DATE: 2019
